FAERS Safety Report 5188511-5 (Version None)
Quarter: 2006Q4

REPORT INFORMATION
  Report Type: 
  Country: None (occurrence: None)
  Receive Date: 20061214
  Receipt Date: 20061208
  Transmission Date: 20070319
  Serious: Yes (Hospitalization)
  Sender: FDA-Public Use
  Company Number: S06-USA-03021-01

PATIENT
  Age: 33 Year
  Sex: Female

DRUGS (3)
  1. CELEXA [Suspect]
     Indication: DEPRESSION
     Dosage: 20 MG QD PO
     Route: 048
     Dates: start: 20060404, end: 20061013
  2. ABILIFY [Concomitant]
  3. ZOLOFT [Concomitant]

REACTIONS (6)
  - ABORTION INCOMPLETE [None]
  - CONTUSION [None]
  - DRUG EXPOSURE DURING PREGNANCY [None]
  - OVERDOSE [None]
  - PHYSICAL ASSAULT [None]
  - PREGNANCY [None]
